FAERS Safety Report 11061886 (Version 1)
Quarter: 2015Q2

REPORT INFORMATION
  Report Type: Spontaneous
  Country: US (occurrence: US)
  Receive Date: 20150424
  Receipt Date: 20150424
  Transmission Date: 20150821
  Serious: No
  Sender: FDA-Public Use
  Company Number: US-BIOGENIDEC-2015BI054088

PATIENT
  Age: 59 Year
  Sex: Male

DRUGS (5)
  1. TECFIDERA [Suspect]
     Active Substance: DIMETHYL FUMARATE
     Indication: MULTIPLE SCLEROSIS
     Route: 048
     Dates: start: 20150331
  2. PROVIGIL [Concomitant]
     Active Substance: MODAFINIL
  3. LISINOPRIL. [Concomitant]
     Active Substance: LISINOPRIL
  4. FOSAMAX [Concomitant]
     Active Substance: ALENDRONATE SODIUM
  5. AMPYRA [Concomitant]
     Active Substance: DALFAMPRIDINE

REACTIONS (1)
  - Drug ineffective [Unknown]
